FAERS Safety Report 6167789-5 (Version None)
Quarter: 2009Q2

REPORT INFORMATION
  Report Type: 
  Country: None (occurrence: None)
  Receive Date: 20090427
  Receipt Date: 20090421
  Transmission Date: 20091009
  Serious: No
  Sender: FDA-Public Use
  Company Number: KR-JNJFOC-20090405982

PATIENT

DRUGS (2)
  1. DURAGESIC-100 [Suspect]
     Dosage: HALF OF 12.5MCG/HR PATCH
     Route: 062
  2. DURAGESIC-100 [Suspect]
     Indication: DRUG USE FOR UNKNOWN INDICATION
     Route: 062

REACTIONS (2)
  - ADVERSE EVENT [None]
  - DRUG PRESCRIBING ERROR [None]
